FAERS Safety Report 4687675-7 (Version None)
Quarter: 2005Q2

REPORT INFORMATION
  Report Type: 
  Country: None (occurrence: None)
  Receive Date: 20050608
  Receipt Date: 20050608
  Transmission Date: 20051028
  Serious: Yes (Other)
  Sender: FDA-Public Use
  Company Number: None

PATIENT
  Sex: Male
  Weight: 92.9874 kg

DRUGS (1)
  1. ZOLOFT [Suspect]
     Indication: MAJOR DEPRESSION
     Dosage: 50MG ONCE A DAY ORAL
     Route: 048
     Dates: start: 20031222, end: 20050607

REACTIONS (5)
  - AGGRESSION [None]
  - ANGER [None]
  - CRYING [None]
  - LOSS OF CONSCIOUSNESS [None]
  - VICTIM OF CRIME [None]
